FAERS Safety Report 7573970-0 (Version None)
Quarter: 2011Q2

REPORT INFORMATION
  Report Type: 
  Country: None (occurrence: None)
  Receive Date: 20110627
  Receipt Date: 20110617
  Transmission Date: 20111010
  Serious: Yes (Death, Life-Threatening, Hospitalization)
  Sender: FDA-Public Use
  Company Number: FR-JNJFOC-20110207474

PATIENT
  Sex: Male
  Weight: 55 kg

DRUGS (8)
  1. NEXIUM [Concomitant]
     Indication: GASTROINTESTINAL DISORDER THERAPY
  2. FERROUS SULFATE TAB [Concomitant]
  3. ABIRATERONE [Suspect]
     Route: 048
  4. PRIMPERAN TAB [Concomitant]
     Indication: NAUSEA
  5. PREDNISOLONE [Suspect]
     Indication: PROSTATE CANCER
     Route: 048
  6. FENOFIBRATE [Concomitant]
     Indication: DYSLIPIDAEMIA
  7. ABIRATERONE [Suspect]
     Indication: PROSTATE CANCER
     Dosage: 4 TABLETS PER DAY
     Route: 048
     Dates: start: 20110115, end: 20110217
  8. ALDACTAZINE [Concomitant]
     Indication: BLOOD PRESSURE INCREASED

REACTIONS (3)
  - RECTAL HAEMORRHAGE [None]
  - ISCHAEMIC CEREBRAL INFARCTION [None]
  - DISSEMINATED INTRAVASCULAR COAGULATION [None]
